FAERS Safety Report 19042300 (Version 3)
Quarter: 2021Q2

REPORT INFORMATION
  Report Type: Spontaneous
  Country: US (occurrence: US)
  Receive Date: 20210323
  Receipt Date: 20210628
  Transmission Date: 20210717
  Serious: Yes (Hospitalization, Other)
  Sender: FDA-Public Use
  Company Number: US-AMNEAL PHARMACEUTICALS-2021-AMRX-00817

PATIENT
  Age: 87 Year
  Sex: Male

DRUGS (2)
  1. RYTARY [Suspect]
     Active Substance: CARBIDOPA\LEVODOPA
     Indication: PARKINSON^S DISEASE
     Dosage: 48.75?195MG, 3 CAPSULES AT 10AM, 2 CAPSULES AT 2 PM, 6PM AND 10 PM, 1 CAPSULE AT 3 AM
     Route: 048
  2. RYTARY [Suspect]
     Active Substance: CARBIDOPA\LEVODOPA
     Dosage: 36.25?145MG 1 CAPSULES, 4 /DAY, AT 3AM, 2PM, 6PM, AND 10PM
     Route: 048

REACTIONS (6)
  - Asthenia [Unknown]
  - Prescribed overdose [Unknown]
  - Gastrointestinal disorder [Unknown]
  - Aneurysm [Unknown]
  - Balance disorder [Unknown]
  - Cystitis [Unknown]

NARRATIVE: CASE EVENT DATE: 20210612
